FAERS Safety Report 10264050 (Version 1)
Quarter: 2014Q2

REPORT INFORMATION
  Report Type: Spontaneous
  Country: US (occurrence: US)
  Receive Date: 20140627
  Receipt Date: 20140627
  Transmission Date: 20141212
  Serious: No
  Sender: FDA-Public Use
  Company Number: US-BIOGENIDEC-2014BI061229

PATIENT
  Age: 61 Year
  Sex: Female

DRUGS (4)
  1. AVONEX [Suspect]
     Indication: MULTIPLE SCLEROSIS
     Route: 030
     Dates: start: 20140207
  2. PRAMIPEXOLE DIHYDROCHLORIDE [Concomitant]
  3. CITALOPRAM HYDROBROMIDE [Concomitant]
  4. LISINOPRIL-HYDROCHLOROTHIAZIDE [Concomitant]

REACTIONS (2)
  - Colonoscopy [Unknown]
  - Vomiting [Unknown]
